FAERS Safety Report 5805010-5 (Version None)
Quarter: 2008Q3

REPORT INFORMATION
  Report Type: 
  Country: None (occurrence: None)
  Receive Date: 20080709
  Receipt Date: 20080630
  Transmission Date: 20090109
  Serious: Yes (Other)
  Sender: FDA-Public Use
  Company Number: GB-BOEHRINGER INGELHEIM GMBH, GERMANY-2008-UK-01318UK

PATIENT
  Age: 72 Year
  Sex: Male
  Weight: 88 kg

DRUGS (9)
  1. SPIRIVA [Suspect]
     Indication: ASTHMA
     Route: 055
     Dates: start: 20080521, end: 20080524
  2. CANDESARTAN [Concomitant]
     Indication: HYPERTENSION
     Route: 048
     Dates: start: 20060616
  3. CLENIL MODULITE [Concomitant]
     Indication: ASTHMA
     Route: 048
     Dates: start: 20070912
  4. GLUCOSAMINE [Concomitant]
     Indication: ARTHRITIS
     Route: 048
     Dates: start: 20070928
  5. LORATADINE [Concomitant]
     Indication: SEASONAL ALLERGY
     Route: 048
     Dates: start: 20070824
  6. MONTELUKAST SODIUM [Concomitant]
     Indication: ASTHMA
     Route: 048
     Dates: start: 20070103
  7. ALBUTEROL [Concomitant]
     Indication: ASTHMA
     Route: 055
     Dates: start: 20060101
  8. SIMVASTATIN [Concomitant]
     Indication: HYPERTENSION
     Route: 048
     Dates: start: 20060101
  9. TRANSVASIN [Concomitant]
     Indication: MYALGIA
     Route: 061
     Dates: start: 20080512

REACTIONS (4)
  - BRONCHOSPASM [None]
  - COUGH [None]
  - EAR PAIN [None]
  - PHARYNGEAL OEDEMA [None]
